FAERS Safety Report 14787037 (Version 5)
Quarter: 2019Q1

REPORT INFORMATION
  Report Type: Spontaneous
  Country: FR (occurrence: FR)
  Receive Date: 20180420
  Receipt Date: 20190220
  Transmission Date: 20190417
  Serious: Yes (Hospitalization, Disabling, Other)
  Sender: FDA-Public Use
  Company Number: FR-TAKEDA-2018TUS010394

PATIENT
  Age: 36 Year
  Sex: Female

DRUGS (10)
  1. ESOMEPRAZOLE. [Concomitant]
     Active Substance: ESOMEPRAZOLE MAGNESIUM
     Dosage: UNK
  2. ENTYVIO [Suspect]
     Active Substance: VEDOLIZUMAB
     Indication: CROHN^S DISEASE
     Dosage: UNK
     Route: 065
     Dates: start: 201512
  3. RIFAMPICIN [Concomitant]
     Active Substance: RIFAMPIN
     Dosage: UNK
     Dates: start: 201702
  4. CERAZETTE                          /00011001/ [Concomitant]
     Active Substance: CEPHALORIDINE
     Dosage: UNK
     Dates: start: 201512
  5. STELARA [Concomitant]
     Active Substance: USTEKINUMAB
     Dosage: UNK
     Dates: start: 20180824
  6. REMICADE [Suspect]
     Active Substance: INFLIXIMAB
     Indication: PRODUCT USED FOR UNKNOWN INDICATION
     Route: 065
  7. DAIVOBET [Concomitant]
     Active Substance: BETAMETHASONE DIPROPIONATE\CALCIPOTRIENE
     Dosage: UNK
     Dates: start: 201512
  8. FLAGYL [Concomitant]
     Active Substance: METRONIDAZOLE\METRONIDAZOLE HYDROCHLORIDE
     Dosage: UNK
     Dates: start: 201702
  9. ASPIRINE [Concomitant]
     Active Substance: ASPIRIN
     Dosage: UNK
  10. CLINDAMYCIN. [Concomitant]
     Active Substance: CLINDAMYCIN
     Dosage: UNK
     Dates: start: 201702

REACTIONS (21)
  - Dyspnoea [Unknown]
  - Folliculitis [Unknown]
  - Psoriasis [Unknown]
  - Pulmonary embolism [Unknown]
  - Viral infection [Recovered/Resolved]
  - Gastroenteritis [Recovered/Resolved]
  - Lupus-like syndrome [Unknown]
  - Hidradenitis [Unknown]
  - Staphylococcal infection [Unknown]
  - Renal vein thrombosis [Unknown]
  - Vomiting [Unknown]
  - Fatigue [Unknown]
  - Pain [Unknown]
  - Headache [Recovered/Resolved]
  - Rash pustular [Unknown]
  - Systemic inflammatory response syndrome [Unknown]
  - Anal fistula [Unknown]
  - Transient ischaemic attack [Recovered/Resolved with Sequelae]
  - Perineal abscess [Recovering/Resolving]
  - Dizziness [Unknown]
  - Hyperhidrosis [Unknown]

NARRATIVE: CASE EVENT DATE: 2016
